FAERS Safety Report 4737764-3 (Version None)
Quarter: 2005Q3

REPORT INFORMATION
  Report Type: 
  Country: None (occurrence: None)
  Receive Date: 20050805
  Receipt Date: 20050726
  Transmission Date: 20060218
  Serious: Yes (Hospitalization, Other)
  Sender: FDA-Public Use
  Company Number: 2005080285

PATIENT
  Age: 68 Year
  Sex: Female
  Weight: 88.4514 kg

DRUGS (5)
  1. CELEBREX [Suspect]
     Indication: ARTHRITIS
     Dosage: 200 MG (200 MG, 1 IN 1 D)
     Dates: start: 19980101
  2. NEXIUM [Concomitant]
  3. LASIX [Concomitant]
  4. VASOTEC [Concomitant]
  5. TYLENOL PM (DIPHENHYDRAMINE,  PARACETAMOL) [Concomitant]

REACTIONS (2)
  - ARTHRITIS [None]
  - CONDITION AGGRAVATED [None]
